FAERS Safety Report 22079635 (Version 1)
Quarter: 2023Q1

REPORT INFORMATION
  Report Type: Spontaneous
  Country: BR (occurrence: BR)
  Receive Date: 20230309
  Receipt Date: 20230309
  Transmission Date: 20230417
  Serious: Yes (Other)
  Sender: FDA-Public Use
  Company Number: BR-SA-SAC20230307000705

PATIENT
  Age: 57 Year
  Sex: Male
  Weight: 74 kg

DRUGS (4)
  1. THYMOGLOBULIN [Suspect]
     Active Substance: LAPINE T-LYMPHOCYTE IMMUNE GLOBULIN
     Indication: Immunosuppression
     Dosage: 225 MG QD
     Route: 042
     Dates: start: 20230224, end: 20230225
  2. HYDROCORTISONE [Concomitant]
     Active Substance: HYDROCORTISONE
     Dosage: 300 MG QD
     Route: 042
     Dates: start: 20230224, end: 20230224
  3. CEFAZOLIN [Concomitant]
     Active Substance: CEFAZOLIN
     Dosage: 1 G, Q8H
     Route: 042
     Dates: start: 20230224, end: 20230225
  4. DIPYRONE [Concomitant]
     Active Substance: DIPYRONE
     Dosage: 1 G, Q6H
     Route: 042
     Dates: start: 20230224, end: 20230225

REACTIONS (2)
  - Hypothermia [Recovering/Resolving]
  - Chills [Recovering/Resolving]

NARRATIVE: CASE EVENT DATE: 20230201
